FAERS Safety Report 24605144 (Version 1)
Quarter: 2024Q4

REPORT INFORMATION
  Report Type: Spontaneous
  Country: US (occurrence: US)
  Receive Date: 20241111
  Receipt Date: 20241111
  Transmission Date: 20250115
  Serious: No
  Sender: PARATEK PHARMACEUTICALS
  Company Number: US-PARATEK PHARMACEUTICALS, INC.-2022PTK00190

PATIENT

DRUGS (3)
  1. NUZYRA [Suspect]
     Active Substance: OMADACYCLINE
     Dosage: 300 MG, 1X/DAY AT NIGHT
     Route: 048
     Dates: start: 202103
  2. CLOFAZIMINE [Concomitant]
     Active Substance: CLOFAZIMINE
  3. AZITHROMYCIN [Concomitant]
     Active Substance: AZITHROMYCIN
     Dosage: UNK

REACTIONS (1)
  - Nausea [Recovering/Resolving]
